FAERS Safety Report 17331330 (Version 1)
Quarter: 2020Q1

REPORT INFORMATION
  Report Type: Spontaneous
  Country: ES (occurrence: ES)
  Receive Date: 20200127
  Receipt Date: 20200127
  Transmission Date: 20200409
  Serious: Yes (Other)
  Sender: FDA-Public Use
  Company Number: ES-PFM-2020-00943

PATIENT

DRUGS (7)
  1. TAMOXIFEN [Concomitant]
     Active Substance: TAMOXIFEN
     Indication: PRODUCT USED FOR UNKNOWN INDICATION
     Dosage: UNKNOWN
     Route: 065
  2. XELODA [Suspect]
     Active Substance: CAPECITABINE
     Indication: INFLAMMATORY CARCINOMA OF THE BREAST
     Dosage: 1000 MG, UNKNOWN
     Route: 065
     Dates: start: 200508
  3. PACLITAXEL. [Concomitant]
     Active Substance: PACLITAXEL
     Indication: PRODUCT USED FOR UNKNOWN INDICATION
     Dosage: 90 MG/M2, WEEKLY
     Route: 065
     Dates: start: 19990702
  4. VINORELBINE TARTRATE. [Suspect]
     Active Substance: VINORELBINE TARTRATE
     Indication: INFLAMMATORY CARCINOMA OF THE BREAST
     Dosage: UNKNOWN
     Route: 065
  5. TAXOTERE [Concomitant]
     Active Substance: DOCETAXEL
     Indication: PRODUCT USED FOR UNKNOWN INDICATION
     Dosage: 85 MG/M2, UNKNOWN
     Route: 065
     Dates: start: 19981006
  6. GEMCITABINE. [Suspect]
     Active Substance: GEMCITABINE
     Indication: INFLAMMATORY CARCINOMA OF THE BREAST
     Dosage: 1000 MG, UNKNOWN
     Route: 065
     Dates: start: 201301, end: 201309
  7. HERCEPTIN [Suspect]
     Active Substance: TRASTUZUMAB
     Indication: INFLAMMATORY CARCINOMA OF THE BREAST
     Dosage: 1 DF, UNKNOWN
     Route: 065

REACTIONS (5)
  - Palmar-plantar erythrodysaesthesia syndrome [Unknown]
  - Discomfort [Unknown]
  - Depression [Unknown]
  - Lymphoedema [Unknown]
  - Asthenia [Unknown]

NARRATIVE: CASE EVENT DATE: 201309
